FAERS Safety Report 13888647 (Version 1)
Quarter: 2017Q3

REPORT INFORMATION
  Report Type: Spontaneous
  Country: US (occurrence: US)
  Receive Date: 20170822
  Receipt Date: 20170822
  Transmission Date: 20171127
  Serious: No
  Sender: FDA-Public Use
  Company Number: US-ROCHE-1213372

PATIENT
  Sex: Male

DRUGS (3)
  1. LEFLUNOMIDE. [Concomitant]
     Active Substance: LEFLUNOMIDE
  2. LIPITOR [Concomitant]
     Active Substance: ATORVASTATIN CALCIUM
     Indication: BLOOD CHOLESTEROL DECREASED
  3. ACTEMRA [Suspect]
     Active Substance: TOCILIZUMAB
     Indication: RHEUMATOID ARTHRITIS
     Route: 065

REACTIONS (14)
  - Fatigue [Unknown]
  - Blood cholesterol increased [Unknown]
  - Blood pressure increased [Unknown]
  - Weight decreased [Unknown]
  - Feeling abnormal [Unknown]
  - Inflammatory marker increased [Unknown]
  - Joint swelling [Unknown]
  - Energy increased [Unknown]
  - Drug ineffective [Unknown]
  - Blood triglycerides increased [Unknown]
  - Hypertension [Unknown]
  - Lipids increased [Unknown]
  - C-reactive protein increased [Unknown]
  - Arthralgia [Unknown]
